FAERS Safety Report 7442023-4 (Version None)
Quarter: 2011Q2

REPORT INFORMATION
  Report Type: 
  Country: None (occurrence: None)
  Receive Date: 20110428
  Receipt Date: 20101213
  Transmission Date: 20111010
  Serious: Yes (Death, Hospitalization, Other)
  Sender: FDA-Public Use
  Company Number: US-BAYER-201019555NA

PATIENT
  Age: 33 Year
  Sex: Female
  Weight: 120 kg

DRUGS (24)
  1. CIPRO [Concomitant]
     Dosage: 250 MG (DAILY DOSE), BID,
  2. DARVOCET [Concomitant]
     Indication: PAIN
     Dosage: 1-2 TABLETS Q4H
  3. PHENERGAN HCL [Concomitant]
  4. YAZ [Suspect]
     Indication: PREMENSTRUAL SYNDROME
  5. JANUVIA [Concomitant]
     Dosage: 2 MG (DAILY DOSE), QD, ORAL
     Route: 048
  6. ZOFRAN [Concomitant]
  7. PROZAC [Concomitant]
     Dosage: 20 MG (DAILY DOSE), QD, ORAL
     Route: 048
  8. IBUPROFEN [Concomitant]
  9. ROCEPHIN [Concomitant]
     Dates: end: 20080624
  10. DIOVAN [Concomitant]
     Dosage: 4 MG (DAILY DOSE), QD, ORAL
     Route: 048
  11. DILAUDID [Concomitant]
  12. ZITHROMAX [Concomitant]
  13. TESSALON [Concomitant]
  14. TRAZODONE [Concomitant]
     Dosage: QHS
     Route: 048
  15. YASMIN [Suspect]
     Indication: PREMENSTRUAL SYNDROME
     Route: 048
     Dates: start: 20080410, end: 20080601
  16. OCELLA [Suspect]
     Indication: PREMENSTRUAL SYNDROME
  17. TUSSIONEX [Concomitant]
  18. IBUPROFEN [Concomitant]
  19. HALDOL [Concomitant]
  20. TUSSIONEX [HYDROCODONE,PHENYLTOLOXAMINE] [Concomitant]
  21. SEROQUEL [Concomitant]
     Dosage: 1000 MG (DAILY DOSE), QD, ORAL
     Route: 048
  22. PROTONIX [Concomitant]
     Dosage: 40 MG (DAILY DOSE), QD, ORAL
     Route: 048
  23. NORMAL SALINE [Concomitant]
  24. ALBUTEROL INHALER [Concomitant]

REACTIONS (4)
  - PULMONARY EMBOLISM [None]
  - DEEP VEIN THROMBOSIS [None]
  - PAIN IN EXTREMITY [None]
  - RESPIRATORY ARREST [None]
